FAERS Safety Report 24717981 (Version 2)
Quarter: 2025Q1

REPORT INFORMATION
  Report Type: Spontaneous
  Country: GB (occurrence: GB)
  Receive Date: 20241210
  Receipt Date: 20250107
  Transmission Date: 20250409
  Serious: Yes (Other)
  Sender: AMERICAN REGENT
  Company Number: GB-AMERICAN REGENT INC-2024004595

PATIENT
  Age: 27 Year
  Sex: Male

DRUGS (1)
  1. FERINJECT [Suspect]
     Active Substance: FERRIC CARBOXYMALTOSE
     Indication: Anaemia
     Route: 065
     Dates: start: 20241128, end: 20241128

REACTIONS (3)
  - Swelling [Recovering/Resolving]
  - Skin discolouration [Unknown]
  - Extravasation [Unknown]

NARRATIVE: CASE EVENT DATE: 20241128
